FAERS Safety Report 12756147 (Version 2)
Quarter: 2016Q4

REPORT INFORMATION
  Report Type: Spontaneous
  Country: DE (occurrence: DE)
  Receive Date: 20160916
  Receipt Date: 20161019
  Transmission Date: 20170207
  Serious: Yes (Life-Threatening, Hospitalization, Other)
  Sender: FDA-Public Use
  Company Number: DE-SA-2016SA166117

PATIENT
  Age: 35 Year
  Sex: Male
  Weight: 65 kg

DRUGS (8)
  1. CITALOPRAM [Concomitant]
     Active Substance: CITALOPRAM HYDROBROMIDE
     Route: 065
     Dates: end: 201608
  2. BECLOMETHASONE W/FENOTEROL [Concomitant]
     Indication: ASTHMA
     Route: 065
  3. ACICLOVIR [Concomitant]
     Active Substance: ACYCLOVIR
     Indication: PROPHYLAXIS
     Route: 065
     Dates: start: 201608, end: 201608
  4. CETIRIZINE [Concomitant]
     Active Substance: CETIRIZINE HYDROCHLORIDE
     Indication: PROPHYLAXIS
     Dates: start: 201608, end: 201608
  5. IBUPROFEN. [Concomitant]
     Active Substance: IBUPROFEN
     Indication: PROPHYLAXIS
     Dates: start: 201608, end: 201608
  6. PANTOPRAZOLE [Concomitant]
     Active Substance: PANTOPRAZOLE SODIUM
     Indication: PROPHYLAXIS
     Dates: start: 201608, end: 201608
  7. METHYLPREDNISOLONE. [Concomitant]
     Active Substance: METHYLPREDNISOLONE
     Indication: PROPHYLAXIS
     Dates: start: 201608, end: 201608
  8. LEMTRADA [Suspect]
     Active Substance: ALEMTUZUMAB
     Indication: RELAPSING-REMITTING MULTIPLE SCLEROSIS
     Route: 041
     Dates: start: 20160801, end: 20160806

REACTIONS (12)
  - Listeria encephalitis [Recovering/Resolving]
  - Hypoacusis [Not Recovered/Not Resolved]
  - Thrombophlebitis [Unknown]
  - Hypoacusis [Unknown]
  - Systemic inflammatory response syndrome [Unknown]
  - Meningoencephalitis bacterial [Not Recovered/Not Resolved]
  - Meningitis bacterial [Recovering/Resolving]
  - Listeria sepsis [Recovering/Resolving]
  - Bicytopenia [Recovering/Resolving]
  - Gastroenteritis [Recovering/Resolving]
  - Malnutrition [Unknown]
  - Post lumbar puncture syndrome [Unknown]

NARRATIVE: CASE EVENT DATE: 201608
